FAERS Safety Report 9099469 (Version 1)
Quarter: 2013Q1

REPORT INFORMATION
  Report Type: Report from Study
  Country: US (occurrence: US)
  Receive Date: 20130214
  Receipt Date: 20130214
  Transmission Date: 20140127
  Serious: Yes (Other)
  Sender: FDA-Public Use
  Company Number: US-VERTEX PHARMACEUTICALS INC.-2013-001882

PATIENT
  Age: 57 Year
  Sex: Male
  Weight: 80 kg

DRUGS (3)
  1. VX-950 (TELAPREVIR) [Suspect]
     Indication: HEPATITIS C
     Dosage: 750 MG, TID
     Route: 048
     Dates: start: 20130107
  2. Z-RIBAVIRIN [Suspect]
     Indication: HEPATITIS C
     Dosage: 1200 MG, BID
     Route: 048
     Dates: start: 20130107
  3. Z-PEGYLATED INTERFERON-2A [Suspect]
     Indication: HEPATITIS C
     Dosage: 180 ?G, QW
     Route: 058
     Dates: start: 20130107

REACTIONS (3)
  - Abdominal pain [Recovered/Resolved]
  - Hypokalaemia [Recovered/Resolved]
  - Fatigue [Recovered/Resolved]
